FAERS Safety Report 7356054-6 (Version None)
Quarter: 2011Q1

REPORT INFORMATION
  Report Type: 
  Country: None (occurrence: None)
  Receive Date: 20110316
  Receipt Date: 20110304
  Transmission Date: 20110831
  Serious: Yes (Other)
  Sender: FDA-Public Use
  Company Number: CA-ELI_LILLY_AND_COMPANY-CA201103001575

PATIENT
  Sex: Female

DRUGS (8)
  1. ZYPREXA [Suspect]
     Dosage: 5 MG, DAILY (1/D)
  2. ZYPREXA [Suspect]
     Indication: SCHIZOAFFECTIVE DISORDER
     Dosage: 7.5 MG, DAILY (1/D)
     Dates: start: 20060126
  3. ATIVAN [Concomitant]
  4. ZYPREXA [Suspect]
     Dosage: 2.5 MG, DAILY (1/D)
  5. ZYPREXA ZYDIS [Suspect]
     Dosage: 2.5 MG, DAILY (1/D)
     Dates: end: 20090606
  6. SYNTHROID [Concomitant]
  7. ZYPREXA ZYDIS [Suspect]
     Indication: SCHIZOAFFECTIVE DISORDER
     Dosage: 10 MG, UNK
     Dates: start: 20080105
  8. RIVOTRIL [Concomitant]
     Dosage: 0.5 MG, DAILY (1/D)

REACTIONS (13)
  - GAIT DISTURBANCE [None]
  - INCREASED APPETITE [None]
  - FUNGAL INFECTION [None]
  - URINARY TRACT INFECTION [None]
  - HYPERGLYCAEMIA [None]
  - PERIPHERAL COLDNESS [None]
  - PERIPHERAL VASCULAR DISORDER [None]
  - WEIGHT INCREASED [None]
  - BLOOD TRIGLYCERIDES INCREASED [None]
  - RASH [None]
  - HIGH DENSITY LIPOPROTEIN DECREASED [None]
  - BLINDNESS [None]
  - DIABETES MELLITUS [None]
